FAERS Safety Report 4310869-7 (Version None)
Quarter: 2004Q1

REPORT INFORMATION
  Report Type: 
  Country: None (occurrence: None)
  Receive Date: 20040304
  Receipt Date: 20040108
  Transmission Date: 20041129
  Serious: Yes (Hospitalization, Other)
  Sender: FDA-Public Use
  Company Number: PHNU2004DE00465

PATIENT
  Age: 42 Year
  Sex: Female

DRUGS (5)
  1. GLEEVEC [Suspect]
     Indication: ACUTE LYMPHOCYTIC LEUKAEMIA
     Dosage: 400MG/DAY
     Route: 048
     Dates: start: 20030101, end: 20030401
  2. GLEEVEC [Suspect]
     Dosage: UP TO 600MG/DAY
     Route: 048
     Dates: start: 20030828
  3. ANTINEOPLASTIC AGENTS [Concomitant]
     Indication: ACUTE LYMPHOCYTIC LEUKAEMIA
     Route: 065
  4. CYTARABINE [Concomitant]
     Indication: ACUTE LYMPHOCYTIC LEUKAEMIA
     Route: 065
     Dates: start: 20030101, end: 20030101
  5. FLUDARABINE PHOSPHATE [Concomitant]
     Route: 065
     Dates: start: 20030101, end: 20030101

REACTIONS (22)
  - ACTIVATED PARTIAL THROMBOPLASTIN TIME PROLONGED [None]
  - ACUTE LYMPHOCYTIC LEUKAEMIA [None]
  - APHASIA [None]
  - BLOOD BILIRUBIN INCREASED [None]
  - BLOOD GLUCOSE INCREASED [None]
  - BONE MARROW LEUKAEMIC CELL INFILTRATION [None]
  - CEREBELLAR SYNDROME [None]
  - DISEASE PROGRESSION [None]
  - DISEASE RECURRENCE [None]
  - FEELING ABNORMAL [None]
  - GAMMA-GLUTAMYLTRANSFERASE INCREASED [None]
  - HAEMATOCRIT DECREASED [None]
  - HAEMOGLOBIN DECREASED [None]
  - HEMIPLEGIA [None]
  - HYPERAESTHESIA [None]
  - MEAN CELL HAEMOGLOBIN [None]
  - MEAN CELL VOLUME ABNORMAL [None]
  - PLATELET COUNT DECREASED [None]
  - RED BLOOD CELL COUNT DECREASED [None]
  - RED BLOOD CELL SEDIMENTATION RATE INCREASED [None]
  - SERUM FERRITIN INCREASED [None]
  - TRANSIENT ISCHAEMIC ATTACK [None]
